FAERS Safety Report 9112816 (Version 2)
Quarter: 2013Q1

REPORT INFORMATION
  Report Type: Spontaneous
  Country: US (occurrence: US)
  Receive Date: 20130211
  Receipt Date: 20130312
  Transmission Date: 20140127
  Serious: Yes (Other)
  Sender: FDA-Public Use
  Company Number: US-ROCHE-1189678

PATIENT
  Age: 100 Year
  Sex: Female

DRUGS (1)
  1. VISMODEGIB [Suspect]
     Indication: BASAL CELL CARCINOMA
     Route: 048

REACTIONS (1)
  - Keratoacanthoma [Unknown]
